FAERS Safety Report 8830777 (Version 2)
Quarter: 2013Q1

REPORT INFORMATION
  Report Type: Spontaneous
  Country: US (occurrence: US)
  Receive Date: 20121009
  Receipt Date: 20130219
  Transmission Date: 20140127
  Serious: No
  Sender: FDA-Public Use
  Company Number: US-PFIZER INC-2012246742

PATIENT
  Age: 93 Year
  Sex: Female
  Weight: 79.37 kg

DRUGS (18)
  1. NEURONTIN [Suspect]
     Indication: PHANTOM PAIN
     Dosage: 100 MG, 3X/DAY
     Route: 048
     Dates: start: 201201, end: 201207
  2. GABAPENTIN [Suspect]
     Indication: PHANTOM PAIN
     Dosage: 100 MG, 3X/DAY
     Route: 048
     Dates: start: 201207, end: 201208
  3. LYRICA [Suspect]
     Indication: PHANTOM PAIN
     Dosage: 50 MG, 3X/DAY
     Route: 048
     Dates: start: 201208, end: 2012
  4. LYRICA [Suspect]
     Dosage: 100 MG, 3X/DAY
     Route: 048
     Dates: start: 2012, end: 2012
  5. LYRICA [Suspect]
     Dosage: 75 MG, 3X/DAY
     Route: 048
     Dates: start: 2012
  6. LYRICA [Suspect]
     Dosage: 50MG DURING THE DAY TIME AND 75MG AT NIGHT
     Route: 048
  7. PROTONIX [Concomitant]
     Indication: GASTROOESOPHAGEAL REFLUX DISEASE
     Dosage: UNK
  8. HYDROCODONE [Concomitant]
     Dosage: UNK
  9. DILTIAZEM [Concomitant]
     Indication: HYPERTENSION
     Dosage: UNK
  10. AMLODIPINE [Concomitant]
     Dosage: UNK
  11. MELOXICAM [Concomitant]
     Dosage: UNK
  12. PANTOPRAZOLE [Concomitant]
     Dosage: UNK
  13. ADVIL [Concomitant]
     Dosage: UNK
  14. VITAMIN D [Concomitant]
     Dosage: UNK
  15. IRON [Concomitant]
     Dosage: UNK
  16. LORAZEPAM [Concomitant]
     Dosage: UNK
  17. PATANOL [Concomitant]
     Dosage: UNK
     Route: 047
  18. TOBREX [Concomitant]
     Dosage: UNK
     Route: 047

REACTIONS (5)
  - Somnolence [Recovered/Resolved]
  - Feeling abnormal [Recovered/Resolved]
  - Drug ineffective [Unknown]
  - Drug ineffective [Unknown]
  - Weight increased [Unknown]
